FAERS Safety Report 15851184 (Version 1)
Quarter: 2019Q1

REPORT INFORMATION
  Report Type: Spontaneous
  Country: DK (occurrence: DK)
  Receive Date: 20190122
  Receipt Date: 20190122
  Transmission Date: 20190417
  Serious: Yes (Other)
  Sender: FDA-Public Use
  Company Number: DK-AUROBINDO-AUR-APL-2019-001916

PATIENT
  Age: 60 Year
  Sex: Female

DRUGS (2)
  1. PIPERACILLIN TAZOBACTAM PA [Suspect]
     Active Substance: PIPERACILLIN SODIUM\TAZOBACTAM SODIUM
     Indication: PNEUMONIA
     Dosage: DOSAGE: UNKNOWN. STRENGTH: 4 G + 5 G
     Route: 065
     Dates: start: 20171130
  2. FLUCONAZOLE. [Suspect]
     Active Substance: FLUCONAZOLE
     Indication: PRODUCT USED FOR UNKNOWN INDICATION
     Dosage: UNKNOWN DOSAGE AND STRENGTH
     Route: 065
     Dates: start: 2017

REACTIONS (5)
  - Rash [Recovering/Resolving]
  - Toxic epidermal necrolysis [Unknown]
  - Exfoliative rash [Unknown]
  - Dermatitis allergic [Unknown]
  - Pruritus [Recovered/Resolved]

NARRATIVE: CASE EVENT DATE: 2017
